FAERS Safety Report 7958410-1 (Version None)
Quarter: 2011Q4

REPORT INFORMATION
  Report Type: 
  Country: None (occurrence: None)
  Receive Date: 20111205
  Receipt Date: 20111123
  Transmission Date: 20120403
  Serious: Yes (Other)
  Sender: FDA-Public Use
  Company Number: BR-MERCK-1111BRA00089

PATIENT
  Sex: Female
  Weight: 58 kg

DRUGS (9)
  1. DOMPERIDONE [Concomitant]
     Route: 048
     Dates: start: 19710101
  2. VYTORIN [Suspect]
     Indication: CARDIAC DISORDER
     Route: 065
  3. CHONDROITIN SULFATE SODIUM AND GLUCOSAMINE SULFATE [Concomitant]
     Indication: CARDIAC DISORDER
     Route: 048
     Dates: start: 19710101
  4. COZAAR [Suspect]
     Indication: CARDIAC DISORDER
     Route: 048
     Dates: start: 19710101
  5. PHENPROCOUMON [Concomitant]
     Route: 048
     Dates: start: 19710101
  6. BISOPROLOL FUMARATE [Concomitant]
     Indication: CARDIAC DISORDER
     Route: 048
     Dates: start: 19710101
  7. FUROSEMIDE SODIUM [Concomitant]
     Indication: POLYURIA
     Route: 048
     Dates: start: 19710101
  8. OMEPRAZOLE [Concomitant]
     Route: 048
     Dates: start: 19710101
  9. INSULIN [Concomitant]
     Indication: DIABETES MELLITUS
     Route: 051

REACTIONS (5)
  - DISEASE COMPLICATION [None]
  - RENAL DISORDER [None]
  - MITRAL VALVE DISEASE [None]
  - ASTHMA [None]
  - ASTHENIA [None]
